FAERS Safety Report 8405922-2 (Version None)
Quarter: 2012Q2

REPORT INFORMATION
  Report Type: 
  Country: None (occurrence: None)
  Receive Date: 20120604
  Receipt Date: 20120528
  Transmission Date: 20120825
  Serious: No
  Sender: FDA-Public Use
  Company Number: JP-JNJFOC-20101200632

PATIENT
  Sex: Male

DRUGS (17)
  1. FENTANYL-100 [Suspect]
     Indication: PAIN
     Route: 062
     Dates: start: 20100424
  2. NORTRIPTYLINE HCL [Concomitant]
     Route: 048
     Dates: start: 20091104, end: 20100922
  3. FLURBIPROFEN [Concomitant]
     Route: 065
  4. MORPHINE HCL ELIXIR [Concomitant]
     Route: 048
     Dates: start: 20110424
  5. ALENDRONATE SODIUM [Concomitant]
     Route: 048
     Dates: start: 20081031
  6. PRAMIPEXOLE DIHYDROCHLORIDE [Concomitant]
     Route: 065
     Dates: start: 20101023
  7. MORPHINE HCL ELIXIR [Concomitant]
     Route: 048
     Dates: start: 20100508
  8. MORPHINE HCL ELIXIR [Concomitant]
     Route: 048
     Dates: start: 20101024
  9. MORPHINE HCL ELIXIR [Concomitant]
     Indication: PAIN
     Route: 048
     Dates: start: 20100515
  10. MORPHINE HCL ELIXIR [Concomitant]
     Route: 048
     Dates: start: 20100522
  11. MORPHINE HCL ELIXIR [Concomitant]
     Route: 048
     Dates: start: 20100424
  12. ONEALFA [Concomitant]
     Route: 048
     Dates: start: 20081031, end: 20100922
  13. ZOLPIDEM [Concomitant]
     Route: 048
     Dates: start: 20101110
  14. TRAMADOL HYDROCHLORIDE [Concomitant]
     Route: 065
     Dates: start: 20101227
  15. MORPHINE HCL ELIXIR [Concomitant]
     Route: 048
     Dates: start: 20100501
  16. LIDOCAINE [Concomitant]
     Route: 065
  17. MELDEST [Concomitant]
     Route: 048
     Dates: start: 20071214, end: 20100922

REACTIONS (2)
  - DRUG PRESCRIBING ERROR [None]
  - RESTLESS LEGS SYNDROME [None]
